FAERS Safety Report 23881583 (Version 3)
Quarter: 2024Q2

REPORT INFORMATION
  Report Type: Spontaneous
  Country: US (occurrence: US)
  Receive Date: 20240521
  Receipt Date: 20240530
  Transmission Date: 20240715
  Serious: Yes (Other)
  Sender: FDA-Public Use
  Company Number: US-LUNDBECK-DKLU3077179

PATIENT
  Age: 2 Year
  Sex: Female
  Weight: 21.77 kg

DRUGS (2)
  1. SABRIL [Suspect]
     Active Substance: VIGABATRIN
     Indication: Infantile spasms
     Route: 065
     Dates: start: 202207
  2. ACTH [Concomitant]
     Active Substance: CORTICOTROPIN
     Indication: Infantile spasms
     Route: 065
     Dates: start: 20240501

REACTIONS (2)
  - Retinal disorder [Unknown]
  - Drug ineffective [Not Recovered/Not Resolved]

NARRATIVE: CASE EVENT DATE: 20240422
